FAERS Safety Report 19607036 (Version 3)
Quarter: 2021Q3

REPORT INFORMATION
  Report Type: Spontaneous
  Country: CZ (occurrence: CZ)
  Receive Date: 20210726
  Receipt Date: 20210914
  Transmission Date: 20211014
  Serious: Yes (Other)
  Sender: FDA-Public Use
  Company Number: CZ-AUROBINDO-AUR-APL-2021-031694

PATIENT
  Age: 40 Year
  Sex: Male

DRUGS (8)
  1. SIMVASTATIN  FILM COATED TABLETS [Suspect]
     Active Substance: SIMVASTATIN
     Indication: DYSLIPIDAEMIA
     Dosage: 20 MILLIGRAM, ONCE A DAY, (20 MILLIGRAM, QD (20 MILLIGRAM DAILY; 20 MG IN THE EVENING))
     Route: 048
  2. MOXONIDINE [Suspect]
     Active Substance: MOXONIDINE
     Indication: CARDIOVASCULAR DISORDER
     Dosage: 1 DOSAGE FORM (0.4 MG IN THE MORNING)
     Route: 048
  3. METOPROLOL. [Concomitant]
     Active Substance: METOPROLOL
     Indication: PRODUCT USED FOR UNKNOWN INDICATION
     Dosage: 50 MILLIGRAM, ONCE A DAY(50 MILLIGRAM DAILY)
     Route: 065
  4. METOPROLOL. [Suspect]
     Active Substance: METOPROLOL
     Indication: CARDIOVASCULAR DISORDER
     Dosage: 2 DOSAGE FORM, ONCE A DAY (25 MG IN THE MORNING AND EVENING)
     Route: 065
  5. MOXONIDINE [Suspect]
     Active Substance: MOXONIDINE
     Indication: HYPERTENSION
     Dosage: 0.4 MILLIGRAM, ONCE A DAY (0.4 MILLIGRAM, QD (0.4 MILLIGRAM DAILY; 0.4 MG IN THE MORNING))
     Route: 048
  6. METOPROLOL. [Suspect]
     Active Substance: METOPROLOL
     Indication: HYPERTENSION
     Dosage: 25 MILLIGRAM, ONCE A DAY
     Route: 065
  7. SIMVASTATIN  FILM COATED TABLETS [Suspect]
     Active Substance: SIMVASTATIN
     Indication: CARDIOVASCULAR DISORDER
     Dosage: 1 DOSAGE FORM, ONCE A DAY (20 MG IN THE EVENING)
     Route: 048
  8. METOPROLOL. [Suspect]
     Active Substance: METOPROLOL
     Dosage: 50 MILLIGRAM, ONCE A DAY (50 MILLIGRAM DAILY)
     Route: 048

REACTIONS (7)
  - Performance status decreased [Recovered/Resolved]
  - Dizziness [Recovered/Resolved]
  - Bradycardia [Unknown]
  - Quality of life decreased [Recovering/Resolving]
  - Sinus bradycardia [Recovered/Resolved]
  - Asthenia [Recovered/Resolved]
  - Drug ineffective [Recovered/Resolved]
